FAERS Safety Report 10055828 (Version 1)
Quarter: 2014Q2

REPORT INFORMATION
  Report Type: Spontaneous
  Country: NL (occurrence: NL)
  Receive Date: 20140403
  Receipt Date: 20140403
  Transmission Date: 20141212
  Serious: Yes (Hospitalization)
  Sender: FDA-Public Use
  Company Number: NL-SUN PHARMACEUTICAL INDUSTRIES LTD-2014SUN00703

PATIENT
  Sex: 0

DRUGS (7)
  1. OXALIPLATIN SUN5MG/ML KONZENTRAT ZUR HERSTELLUNG EINER INFUSIONSL?SUNG [Suspect]
     Indication: PRODUCT USED FOR UNKNOWN INDICATION
     Dosage: 215 MG, UNK
     Route: 065
  2. XELODA 1800 MG [Concomitant]
  3. DEXAMETHASONE [Concomitant]
  4. GRANISETRON [Concomitant]
  5. METOCLOPRAMIDE [Concomitant]
  6. MACROGOL [Concomitant]
  7. LOPERAMIDE [Concomitant]

REACTIONS (4)
  - Stridor [Recovered/Resolved]
  - Tongue disorder [Recovered/Resolved]
  - Bronchospasm [Recovered/Resolved]
  - Dyspnoea [Recovered/Resolved]
